FAERS Safety Report 4749769-7 (Version None)
Quarter: 2005Q3

REPORT INFORMATION
  Report Type: 
  Country: None (occurrence: None)
  Receive Date: 20050822
  Receipt Date: 20050815
  Transmission Date: 20060218
  Serious: Yes (Hospitalization)
  Sender: FDA-Public Use
  Company Number: US-BRISTOL-MYERS SQUIBB COMPANY-13078449

PATIENT
  Age: 69 Year
  Sex: Female
  Weight: 59 kg

DRUGS (3)
  1. CETUXIMAB [Suspect]
     Indication: NEOPLASM MALIGNANT
     Dosage: INITIATED ON 10-JUN-2005/ADMIN WEEKS 2-6/TOTAL DOSE THIS COURSE = 410 MG.
     Route: 042
     Dates: start: 20050729, end: 20050729
  2. CARBOPLATIN [Suspect]
     Indication: NEOPLASM MALIGNANT
     Dosage: INITIATED 10-JUN-2005/ADMIN WEEKS 1-6/AUC=2/TOTAL DOSE ADMINISTERED THIS COURSE = 218 MG.
     Route: 042
     Dates: start: 20050729, end: 20050729
  3. PACLITAXEL [Suspect]
     Indication: NEOPLASM MALIGNANT
     Dosage: INITIATED ON 10-JUN-2005/ADMIN. WEEKS 1-6/TOTAL DOSE ADMINISTERED THIS COURSE = 221 MG.
     Route: 042
     Dates: start: 20050729, end: 20050729

REACTIONS (15)
  - BLOOD BILIRUBIN INCREASED [None]
  - BLOOD CREATININE INCREASED [None]
  - CHILLS [None]
  - DEVICE FAILURE [None]
  - DIARRHOEA [None]
  - HAEMOGLOBIN DECREASED [None]
  - HYPERHIDROSIS [None]
  - HYPONATRAEMIA [None]
  - NAUSEA [None]
  - NEUTROPENIA [None]
  - PAIN [None]
  - PAIN IN EXTREMITY [None]
  - SMALL INTESTINAL OBSTRUCTION [None]
  - URINARY TRACT INFECTION [None]
  - VOMITING [None]
